FAERS Safety Report 12261654 (Version 1)
Quarter: 2016Q2

REPORT INFORMATION
  Report Type: Spontaneous
  Country: US (occurrence: US)
  Receive Date: 20160413
  Receipt Date: 20160413
  Transmission Date: 20160815
  Serious: No
  Sender: FDA-Public Use
  Company Number: US-BAYER-2016-070356

PATIENT
  Age: 75 Year
  Sex: Female
  Weight: 79.37 kg

DRUGS (4)
  1. TIKOSYN [Concomitant]
     Active Substance: DOFETILIDE
  2. MIRALAX [Suspect]
     Active Substance: POLYETHYLENE GLYCOL 3350
     Indication: IRRITABLE BOWEL SYNDROME
     Dosage: UNK
     Route: 048
  3. MIRALAX [Suspect]
     Active Substance: POLYETHYLENE GLYCOL 3350
     Indication: COLITIS
     Dosage: UNK
     Route: 048
  4. MIRALAX [Suspect]
     Active Substance: POLYETHYLENE GLYCOL 3350
     Indication: ULCER
     Dosage: 1 DF, QD
     Route: 048

REACTIONS (2)
  - Expired product administered [None]
  - Product use issue [None]
